FAERS Safety Report 16948246 (Version 1)
Quarter: 2019Q4

REPORT INFORMATION
  Report Type: Spontaneous
  Country: US (occurrence: US)
  Receive Date: 20191022
  Receipt Date: 20191022
  Transmission Date: 20200122
  Serious: No
  Sender: FDA-Public Use
  Company Number: US-ROCHE-2366990

PATIENT
  Sex: Female

DRUGS (1)
  1. ESBRIET [Suspect]
     Active Substance: PIRFENIDONE
     Indication: IDIOPATHIC PULMONARY FIBROSIS
     Dosage: 2 TABLETS EVERY MORNING, 1 TABLET MIDDAY AND 1 TABLET AT BEDTIME WITH MEALS
     Route: 048
     Dates: start: 201902

REACTIONS (1)
  - Abdominal pain upper [Unknown]
